FAERS Safety Report 22318548 (Version 8)
Quarter: 2023Q4

REPORT INFORMATION
  Report Type: Spontaneous
  Country: CA (occurrence: CA)
  Receive Date: 20230515
  Receipt Date: 20231012
  Transmission Date: 20240110
  Serious: Yes (Hospitalization, Other)
  Sender: FDA-Public Use
  Company Number: CA-CELLTRION INC.-2023CA008945

PATIENT

DRUGS (12)
  1. INFLECTRA [Suspect]
     Active Substance: INFLIXIMAB-DYYB
     Indication: Colitis ulcerative
     Dosage: 235 MG, W0, W2, W6 AND Q8 WEEKS
     Route: 042
     Dates: start: 20230331
  2. INFLECTRA [Suspect]
     Active Substance: INFLIXIMAB-DYYB
     Dosage: 235 MG, W0, W2, W6 AND Q8 WEEKS
     Route: 042
     Dates: start: 20230331
  3. INFLECTRA [Suspect]
     Active Substance: INFLIXIMAB-DYYB
     Dosage: 235 MG, W0, W2, W6 (INDUCTION DOSE)
     Route: 042
     Dates: start: 20230331, end: 20230616
  4. INFLECTRA [Suspect]
     Active Substance: INFLIXIMAB-DYYB
     Dosage: 235 MG ON WEEK 2/W0, W2, W6 AND Q8 WEEKS
     Route: 042
     Dates: start: 20230505
  5. INFLECTRA [Suspect]
     Active Substance: INFLIXIMAB-DYYB
     Dosage: 235 MG, W0, W2, W6 AND Q8 WEEKS
     Route: 042
     Dates: start: 20230616
  6. INFLECTRA [Suspect]
     Active Substance: INFLIXIMAB-DYYB
     Dosage: 250 MG (5MG/KG), AFTER 8 WEEKS
     Route: 042
     Dates: start: 20230811
  7. INFLECTRA [Suspect]
     Active Substance: INFLIXIMAB-DYYB
     Dosage: 242.5 MG EVERY 8 WEEKS (5 MG/KG EVERY 8 WEEKS)
     Route: 042
     Dates: start: 20231003
  8. LORAZEPAM [Concomitant]
     Active Substance: LORAZEPAM
     Indication: Anxiety
     Dosage: 1 DF, 2X/DAY
  9. METOPROLOL [Concomitant]
     Active Substance: METOPROLOL
     Dosage: 1 DF
  10. OXYGEN [Concomitant]
     Active Substance: OXYGEN
     Dosage: 1 DF
  11. PANTOPRAZOLE [Concomitant]
     Active Substance: PANTOPRAZOLE
     Dosage: 1 DF
  12. PREGABALIN [Concomitant]
     Active Substance: PREGABALIN
     Dosage: UNK

REACTIONS (19)
  - Stoma site erythema [Recovered/Resolved]
  - Chronic obstructive pulmonary disease [Unknown]
  - Fatigue [Not Recovered/Not Resolved]
  - Discomfort [Unknown]
  - Depression [Not Recovered/Not Resolved]
  - Anxiety [Not Recovered/Not Resolved]
  - Temperature intolerance [Unknown]
  - Fear [Unknown]
  - Malaise [Unknown]
  - Condition aggravated [Not Recovered/Not Resolved]
  - Loss of personal independence in daily activities [Not Recovered/Not Resolved]
  - Asthenia [Not Recovered/Not Resolved]
  - Stoma site rash [Recovering/Resolving]
  - Stoma site discharge [Recovering/Resolving]
  - Stoma site pain [Unknown]
  - Stoma site infection [Not Recovered/Not Resolved]
  - Fall [Unknown]
  - Pain [Unknown]
  - Stoma site pruritus [Not Recovered/Not Resolved]

NARRATIVE: CASE EVENT DATE: 20230101
